FAERS Safety Report 19270214 (Version 3)
Quarter: 2022Q2

REPORT INFORMATION
  Report Type: Spontaneous
  Country: US (occurrence: US)
  Receive Date: 20210518
  Receipt Date: 20220407
  Transmission Date: 20220721
  Serious: No
  Sender: FDA-Public Use
  Company Number: US-PFIZER INC-2021437604

PATIENT
  Age: 42 Year
  Sex: Female
  Weight: 143.5 kg

DRUGS (4)
  1. IBRANCE [Suspect]
     Active Substance: PALBOCICLIB
     Indication: Breast cancer female
     Dosage: 125 MG (DAILY FOR 21 DAYS ON, THEN 7 DAYS OFF))
     Route: 048
     Dates: start: 20210323
  2. IBRANCE [Suspect]
     Active Substance: PALBOCICLIB
     Dosage: 75 MG,21 DAYS ON ,7DAYS OFF
     Route: 048
     Dates: start: 20210323
  3. ANASTROZOLE [Concomitant]
     Active Substance: ANASTROZOLE
     Dosage: 1 MG
  4. CALCIUM [Concomitant]
     Active Substance: CALCIUM
     Dosage: (500 (1250) TAB CHEW)
     Route: 048

REACTIONS (4)
  - Stomatitis [Unknown]
  - Erythema [Unknown]
  - Rash [Recovered/Resolved]
  - Dizziness [Recovered/Resolved]

NARRATIVE: CASE EVENT DATE: 20210101
